FAERS Safety Report 11052017 (Version 3)
Quarter: 2017Q1

REPORT INFORMATION
  Report Type: Report from Study
  Country: BR (occurrence: BR)
  Receive Date: 20150421
  Receipt Date: 20170118
  Transmission Date: 20170428
  Serious: Yes (Death, Life-Threatening, Other)
  Sender: FDA-Public Use
  Company Number: BR-ALEXION PHARMACEUTICALS INC.-A201501135

PATIENT
  Age: 44 Year
  Sex: Male

DRUGS (2)
  1. SOLIRIS [Suspect]
     Active Substance: ECULIZUMAB
     Dosage: 1200 MG, Q2W
     Route: 042
     Dates: start: 20150327, end: 20150519
  2. SOLIRIS [Suspect]
     Active Substance: ECULIZUMAB
     Indication: HAEMOLYTIC URAEMIC SYNDROME
     Dosage: 900 MG, QW
     Route: 042
     Dates: start: 20150301, end: 20150320

REACTIONS (4)
  - Sepsis [Fatal]
  - Inappropriate schedule of drug administration [Unknown]
  - Pyrexia [Fatal]
  - Duodenal perforation [Not Recovered/Not Resolved]

NARRATIVE: CASE EVENT DATE: 20150301
